FAERS Safety Report 6584105-5 (Version None)
Quarter: 2010Q1

REPORT INFORMATION
  Report Type: 
  Country: None (occurrence: None)
  Receive Date: 20100216
  Receipt Date: 20091230
  Transmission Date: 20100710
  Serious: No
  Sender: FDA-Public Use
  Company Number: US-ABBOTT-09P-163-0617122-00

PATIENT
  Sex: Male
  Weight: 113.5 kg

DRUGS (1)
  1. SIMCOR [Suspect]
     Indication: HYPERCHOLESTEROLAEMIA
     Dates: start: 20090101

REACTIONS (3)
  - ERYTHEMA [None]
  - FEELING HOT [None]
  - FLUSHING [None]
